FAERS Safety Report 23376439 (Version 3)
Quarter: 2025Q1

REPORT INFORMATION
  Report Type: Spontaneous
  Country: US (occurrence: US)
  Receive Date: 20240108
  Receipt Date: 20250220
  Transmission Date: 20250409
  Serious: Yes (Other)
  Sender: ELI LILLY AND COMPANY
  Company Number: US-ELI_LILLY_AND_COMPANY-US202401003364

PATIENT
  Age: 75 Year
  Sex: Male

DRUGS (19)
  1. HUMULIN R U-500 [Suspect]
     Active Substance: INSULIN HUMAN
     Indication: Product used for unknown indication
     Route: 065
  2. HUMULIN R U-500 [Suspect]
     Active Substance: INSULIN HUMAN
     Indication: Product used for unknown indication
     Route: 065
  3. HUMULIN R U-500 [Suspect]
     Active Substance: INSULIN HUMAN
     Indication: Product used for unknown indication
     Route: 065
  4. HUMULIN R U-500 [Suspect]
     Active Substance: INSULIN HUMAN
     Route: 065
  5. HUMULIN R U-500 [Suspect]
     Active Substance: INSULIN HUMAN
     Route: 065
  6. HUMULIN R U-500 [Suspect]
     Active Substance: INSULIN HUMAN
     Route: 065
  7. HUMULIN R U-500 [Suspect]
     Active Substance: INSULIN HUMAN
     Route: 065
  8. HUMULIN R U-500 [Suspect]
     Active Substance: INSULIN HUMAN
     Route: 065
  9. HUMULIN R U-500 [Suspect]
     Active Substance: INSULIN HUMAN
     Route: 065
  10. HUMULIN R U-500 [Suspect]
     Active Substance: INSULIN HUMAN
     Route: 065
  11. HUMULIN R U-500 [Suspect]
     Active Substance: INSULIN HUMAN
     Route: 065
  12. HUMULIN R U-500 [Suspect]
     Active Substance: INSULIN HUMAN
     Route: 065
  13. HUMULIN R U-500 [Suspect]
     Active Substance: INSULIN HUMAN
     Route: 065
  14. HUMULIN R U-500 [Suspect]
     Active Substance: INSULIN HUMAN
     Route: 065
  15. HUMULIN R U-500 [Suspect]
     Active Substance: INSULIN HUMAN
     Route: 065
  16. HUMULIN R U-500 [Suspect]
     Active Substance: INSULIN HUMAN
     Route: 065
  17. HUMULIN R U-500 [Suspect]
     Active Substance: INSULIN HUMAN
     Route: 065
  18. HUMULIN R U-500 [Suspect]
     Active Substance: INSULIN HUMAN
     Route: 065
  19. HUMULIN R U-500 [Suspect]
     Active Substance: INSULIN HUMAN
     Route: 065

REACTIONS (4)
  - Eye haemorrhage [Unknown]
  - Visual impairment [Unknown]
  - Product dose omission issue [Unknown]
  - Blood glucose increased [Unknown]
